FAERS Safety Report 17752249 (Version 1)
Quarter: 2020Q2

REPORT INFORMATION
  Report Type: Spontaneous
  Country: GB (occurrence: GB)
  Receive Date: 20200506
  Receipt Date: 20200506
  Transmission Date: 20200714
  Serious: Yes (Death, Hospitalization)
  Sender: FDA-Public Use
  Company Number: GB-MYLANLABS-2020M1045387

PATIENT
  Sex: Male

DRUGS (28)
  1. KETAMINE [Suspect]
     Active Substance: KETAMINE
     Indication: RESPIRATORY FUME INHALATION DISORDER
  2. SODIUM BICARBONATE. [Suspect]
     Active Substance: SODIUM BICARBONATE
     Indication: RESPIRATORY FUME INHALATION DISORDER
  3. SODIUM BICARBONATE. [Suspect]
     Active Substance: SODIUM BICARBONATE
     Indication: METABOLIC ACIDOSIS
     Dosage: 100 MILLILITER
     Route: 065
  4. CALCIUM CHLORIDE. [Suspect]
     Active Substance: CALCIUM CHLORIDE
     Indication: METABOLIC ACIDOSIS
     Dosage: 10 MILLILITER
     Route: 065
  5. DICOBALT EDETATE [Suspect]
     Active Substance: DICOBALT EDETATE
     Indication: POISONING
     Dosage: 300 MILLIGRAM
     Route: 065
  6. EPINEPHRINE. [Suspect]
     Active Substance: EPINEPHRINE
     Indication: RESPIRATORY FUME INHALATION DISORDER
     Dosage: 0.4 MICROGRAM/KILOGRAM, QMINUTE(INFUSION)
     Route: 050
  7. KETAMINE [Suspect]
     Active Substance: KETAMINE
     Indication: PROPHYLAXIS
     Dosage: 40 MILLIGRAM
     Route: 065
  8. SODIUM BICARBONATE. [Suspect]
     Active Substance: SODIUM BICARBONATE
     Indication: POISONING
     Dosage: 50 MILLILITER
     Route: 065
  9. CALCIUM CHLORIDE. [Suspect]
     Active Substance: CALCIUM CHLORIDE
     Indication: RESPIRATORY FUME INHALATION DISORDER
  10. NORMAL SALINE [Suspect]
     Active Substance: SODIUM CHLORIDE
     Indication: RESPIRATORY FUME INHALATION DISORDER
  11. HYDROXOCOBALAMIN [Suspect]
     Active Substance: HYDROXOCOBALAMIN
     Indication: RESPIRATORY FUME INHALATION DISORDER
  12. NORMAL SALINE [Suspect]
     Active Substance: SODIUM CHLORIDE
     Indication: POISONING
     Dosage: 1000 MILLILITER
     Route: 040
  13. EPINEPHRINE. [Suspect]
     Active Substance: EPINEPHRINE
     Indication: POISONING
     Dosage: 200 MICROGRAM(INFUSION)
     Route: 050
  14. EPINEPHRINE. [Suspect]
     Active Substance: EPINEPHRINE
     Dosage: 0.6 MICROGRAM/KILOGRAM, QMINUTE(INFUSION)
     Route: 050
  15. CALCIUM CHLORIDE. [Suspect]
     Active Substance: CALCIUM CHLORIDE
     Indication: POISONING
  16. SODIUM THIOSULFATE [Suspect]
     Active Substance: SODIUM THIOSULFATE
     Indication: RESPIRATORY FUME INHALATION DISORDER
  17. SODIUM THIOSULFATE [Suspect]
     Active Substance: SODIUM THIOSULFATE
     Indication: POISONING
     Dosage: 12.5 GRAM
     Route: 065
  18. HARTMANN^S SOLUTION [Suspect]
     Active Substance: CALCIUM CHLORIDE\POTASSIUM CHLORIDE\SODIUM CHLORIDE\SODIUM LACTATE
     Indication: POISONING
  19. EPINEPHRINE. [Suspect]
     Active Substance: EPINEPHRINE
     Indication: HYPOTENSION
     Dosage: 0.02 TO 0.04 MCG/KG/MIN(INFUSION)
     Route: 050
  20. ROCURONIUM [Suspect]
     Active Substance: ROCURONIUM BROMIDE
     Indication: RESPIRATORY FUME INHALATION DISORDER
  21. KETAMINE [Suspect]
     Active Substance: KETAMINE
     Indication: POISONING
  22. HARTMANN^S SOLUTION [Suspect]
     Active Substance: CALCIUM CHLORIDE\POTASSIUM CHLORIDE\SODIUM CHLORIDE\SODIUM LACTATE
     Indication: RESPIRATORY FUME INHALATION DISORDER
  23. HYDROXOCOBALAMIN [Suspect]
     Active Substance: HYDROXOCOBALAMIN
     Indication: POISONING
     Dosage: 5 GRAM
     Route: 042
  24. ROCURONIUM [Suspect]
     Active Substance: ROCURONIUM BROMIDE
     Indication: PROPHYLAXIS
     Dosage: 50 MILLIGRAM
     Route: 065
  25. ROCURONIUM [Suspect]
     Active Substance: ROCURONIUM BROMIDE
     Indication: POISONING
  26. HARTMANN^S SOLUTION [Suspect]
     Active Substance: CALCIUM CHLORIDE\POTASSIUM CHLORIDE\SODIUM CHLORIDE\SODIUM LACTATE
     Indication: METABOLIC ACIDOSIS
     Dosage: 1 LITER
     Route: 050
  27. DICOBALT EDETATE [Suspect]
     Active Substance: DICOBALT EDETATE
     Indication: METABOLIC ACIDOSIS
  28. DICOBALT EDETATE [Suspect]
     Active Substance: DICOBALT EDETATE
     Indication: RESPIRATORY FUME INHALATION DISORDER

REACTIONS (1)
  - Drug ineffective [Fatal]
